FAERS Safety Report 6808393-2 (Version None)
Quarter: 2010Q2

REPORT INFORMATION
  Report Type: 
  Country: None (occurrence: None)
  Receive Date: 20100629
  Receipt Date: 20090817
  Transmission Date: 20101027
  Serious: No
  Sender: FDA-Public Use
  Company Number: US-PFIZER INC-2009216939

PATIENT
  Sex: Male
  Weight: 91 kg

DRUGS (2)
  1. TIKOSYN [Suspect]
     Dosage: UNK
     Dates: start: 20090512
  2. VYTORIN [Concomitant]
     Dosage: UNK

REACTIONS (1)
  - HYPERTENSION [None]
